FAERS Safety Report 16217887 (Version 2)
Quarter: 2019Q2

REPORT INFORMATION
  Report Type: Report from Study
  Country: BE (occurrence: BE)
  Receive Date: 20190419
  Receipt Date: 20190519
  Transmission Date: 20190711
  Serious: Yes (Hospitalization)
  Sender: FDA-Public Use
  Company Number: BE-AMGEN-BELCT2016140424

PATIENT
  Age: 65 Year
  Sex: Female
  Weight: 68.1 kg

DRUGS (15)
  1. DABRAFENIB [Suspect]
     Active Substance: DABRAFENIB
     Indication: COLORECTAL CANCER
     Dosage: 300 MILLIGRAM, QD
     Route: 048
     Dates: start: 20140220, end: 20141001
  2. DABRAFENIB [Suspect]
     Active Substance: DABRAFENIB
     Dosage: 300 MILLIGRAM
     Route: 048
     Dates: start: 20150218, end: 20150331
  3. TRAMETINIB [Suspect]
     Active Substance: TRAMETINIB
     Indication: COLORECTAL CANCER
     Dosage: 2 MILLIGRAM, QD
     Route: 048
     Dates: start: 20140220, end: 20141001
  4. TRAMETINIB [Suspect]
     Active Substance: TRAMETINIB
     Dosage: 1.5 MILLIGRAM, QD
     Route: 048
     Dates: start: 20160911
  5. TRAMETINIB [Suspect]
     Active Substance: TRAMETINIB
     Dosage: 1.5 MILLIGRAM, QD
     Route: 048
     Dates: start: 20150415, end: 20150804
  6. DABRAFENIB [Suspect]
     Active Substance: DABRAFENIB
     Dosage: 100 MILLIGRAM, QD
     Route: 048
     Dates: start: 20141015, end: 20141029
  7. DABRAFENIB [Suspect]
     Active Substance: DABRAFENIB
     Dosage: 300 MILLIGRAM, QD
     Route: 048
     Dates: start: 20141030, end: 20150203
  8. DABRAFENIB [Suspect]
     Active Substance: DABRAFENIB
     Dosage: 200 MILLIGRAM, QD
     Route: 048
     Dates: start: 20160911
  9. PANITUMUMAB [Suspect]
     Active Substance: PANITUMUMAB
     Indication: COLORECTAL CANCER
     Dosage: 343.2 MILLIGRAM, UNK
     Route: 041
     Dates: start: 20140220, end: 20140220
  10. TRAMETINIB [Suspect]
     Active Substance: TRAMETINIB
     Dosage: 2 MILLIGRAM, QD
     Route: 048
     Dates: start: 20141030, end: 20150203
  11. TRAMETINIB [Suspect]
     Active Substance: TRAMETINIB
     Dosage: 1.5 MILLIGRAM, QD
     Route: 048
     Dates: start: 20150819, end: 20160907
  12. DABRAFENIB [Suspect]
     Active Substance: DABRAFENIB
     Dosage: 200 MILLIGRAM, QD
     Route: 048
     Dates: start: 20150415, end: 20150804
  13. DABRAFENIB [Suspect]
     Active Substance: DABRAFENIB
     Dosage: 200 MILLIGRAM, QD
     Route: 048
     Dates: start: 20150819, end: 20160907
  14. TRAMETINIB [Suspect]
     Active Substance: TRAMETINIB
     Dosage: 0.5 MILLIGRAM, QD
     Route: 048
     Dates: start: 20141015, end: 20141029
  15. TRAMETINIB [Suspect]
     Active Substance: TRAMETINIB
     Dosage: 2 MILLIGRAM, QD
     Route: 048
     Dates: start: 20150218, end: 20150331

REACTIONS (3)
  - Small intestinal obstruction [Recovered/Resolved]
  - Intestinal obstruction [Not Recovered/Not Resolved]
  - Intestinal obstruction [Recovered/Resolved]

NARRATIVE: CASE EVENT DATE: 20160908
